FAERS Safety Report 6148386-4 (Version None)
Quarter: 2009Q2

REPORT INFORMATION
  Report Type: 
  Country: None (occurrence: None)
  Receive Date: 20090408
  Receipt Date: 20090325
  Transmission Date: 20091009
  Serious: Yes (Hospitalization)
  Sender: FDA-Public Use
  Company Number: GB-GENENTECH-280292

PATIENT
  Sex: Female

DRUGS (2)
  1. BEVACIZUMAB [Suspect]
     Indication: COLON CANCER
     Dosage: 412 UNK, Q3W
     Route: 042
     Dates: start: 20080101
  2. CAPECITABINE [Suspect]
     Indication: COLON CANCER
     Dosage: 2000 MG, BID
     Route: 048
     Dates: start: 20080101

REACTIONS (2)
  - CARDIOMYOPATHY [None]
  - PULMONARY EMBOLISM [None]
